FAERS Safety Report 10196006 (Version 3)
Quarter: 2014Q2

REPORT INFORMATION
  Report Type: Spontaneous
  Country: US (occurrence: US)
  Receive Date: 20140527
  Receipt Date: 20140617
  Transmission Date: 20141212
  Serious: No
  Sender: FDA-Public Use
  Company Number: US-PFIZER INC-2014138720

PATIENT
  Age: 75 Year
  Sex: Male

DRUGS (6)
  1. SUTENT [Suspect]
     Indication: HEPATIC CANCER
     Dosage: 50 MG, CYCLIC (DAILY FOR 28 DAYS ON AND 14 DAYS OFF)
     Dates: start: 20140505
  2. LISINOPRIL [Concomitant]
     Dosage: UNK
  3. NORVASC [Concomitant]
     Dosage: UNK
  4. PRILOSEC [Concomitant]
     Dosage: UNK
  5. AMBIEN [Concomitant]
     Dosage: UNK
  6. LASIX [Concomitant]
     Dosage: UNK

REACTIONS (9)
  - Fatigue [Unknown]
  - Dysgeusia [Unknown]
  - Insomnia [Unknown]
  - Night sweats [Unknown]
  - Diarrhoea [Unknown]
  - Dyspnoea [Unknown]
  - Cough [Unknown]
  - Fluid overload [Unknown]
  - Off label use [Unknown]
